FAERS Safety Report 12188864 (Version 2)
Quarter: 2016Q2

REPORT INFORMATION
  Report Type: Spontaneous
  Country: DE (occurrence: DE)
  Receive Date: 20160317
  Receipt Date: 20160420
  Transmission Date: 20160815
  Serious: Yes (Other)
  Sender: FDA-Public Use
  Company Number: GXKR2016DE001356

PATIENT
  Sex: Female
  Weight: 75 kg

DRUGS (3)
  1. GENTAMICIN HEXAL SF [Suspect]
     Active Substance: GENTAMICIN
     Indication: ATYPICAL PNEUMONIA
     Dosage: 2X 80 MG EVERY FOUR WEEKS WITH VARPORISER PARI BOY
     Route: 055
  2. GENTAMICIN HEXAL SF [Suspect]
     Active Substance: GENTAMICIN
     Indication: PROPHYLAXIS
  3. PREDNISOLON [Concomitant]
     Active Substance: PREDNISOLONE
     Indication: PRODUCT USED FOR UNKNOWN INDICATION
     Route: 065

REACTIONS (3)
  - Polyneuropathy [Unknown]
  - Product use issue [Not Recovered/Not Resolved]
  - Conjunctivitis [Recovering/Resolving]
